FAERS Safety Report 20535746 (Version 1)
Quarter: 2022Q1

REPORT INFORMATION
  Report Type: Spontaneous
  Country: JP (occurrence: JP)
  Receive Date: 20220302
  Receipt Date: 20220302
  Transmission Date: 20220423
  Serious: Yes (Hospitalization)
  Sender: FDA-Public Use
  Company Number: JP-BAYER-2021A238109

PATIENT
  Age: 69 Year
  Sex: Male

DRUGS (6)
  1. XARELTO [Suspect]
     Active Substance: RIVAROXABAN
     Indication: Atrial fibrillation
     Dosage: 10MG DAILY
     Route: 048
     Dates: start: 20201012, end: 20210521
  2. TELMISARTAN [Concomitant]
     Active Substance: TELMISARTAN
     Dosage: 40MG DAILY
     Route: 048
     Dates: start: 20160204, end: 20210506
  3. ADALAT CC [Concomitant]
     Active Substance: NIFEDIPINE
     Dosage: 20MG DAILY
     Route: 048
     Dates: start: 20160204
  4. TRICHLORMETHIAZIDE [Concomitant]
     Active Substance: TRICHLORMETHIAZIDE
     Dosage: 2MG DAILY
     Route: 048
     Dates: start: 20160204, end: 20210506
  5. VONOPRAZAN FUMARATE [Concomitant]
     Active Substance: VONOPRAZAN FUMARATE
     Dosage: 20MG DAILY
     Route: 048
     Dates: start: 20201012
  6. FLUITRAN [BENZALKONIUM CHLORIDE;SODIUM CHLORIDE] [Concomitant]
     Dosage: UNK
     Dates: end: 20210506

REACTIONS (2)
  - Glomerulonephritis rapidly progressive [Recovering/Resolving]
  - Anticoagulant-related nephropathy [Recovering/Resolving]

NARRATIVE: CASE EVENT DATE: 20201221
